FAERS Safety Report 6772724-2 (Version None)
Quarter: 2010Q2

REPORT INFORMATION
  Report Type: 
  Country: None (occurrence: None)
  Receive Date: 20100614
  Receipt Date: 20100610
  Transmission Date: 20101027
  Serious: Yes (Other)
  Sender: FDA-Public Use
  Company Number: 2010SP028068

PATIENT
  Age: 33 Year
  Sex: Male

DRUGS (6)
  1. PEG-INTRON [Suspect]
     Indication: HEPATITIS C
     Dosage: 100 MCG;QW;SC
     Route: 058
     Dates: start: 20060101, end: 20070501
  2. REBETOL [Concomitant]
     Indication: HEPATITIS C
     Dosage: 600 MG;QD;PO
     Route: 048
     Dates: start: 20060101, end: 20070501
  3. PHENYTOIN [Concomitant]
  4. DIHYDROERGOTAMINE [Concomitant]
  5. MESILATE [Concomitant]
  6. VALPROATE SODIUM [Concomitant]

REACTIONS (12)
  - ASPARTATE AMINOTRANSFERASE INCREASED [None]
  - BLISTER [None]
  - CEREBRAL HAEMORRHAGE [None]
  - CONJUNCTIVITIS [None]
  - HIRSUTISM [None]
  - PHOTOSENSITIVITY REACTION [None]
  - PIGMENTATION DISORDER [None]
  - PORPHYRIA NON-ACUTE [None]
  - SCAR [None]
  - SKIN DEPIGMENTATION [None]
  - SKIN EROSION [None]
  - ULCER [None]
